FAERS Safety Report 7910135-4 (Version None)
Quarter: 2011Q4

REPORT INFORMATION
  Report Type: 
  Country: None (occurrence: None)
  Receive Date: 20111111
  Receipt Date: 20111102
  Transmission Date: 20120403
  Serious: Yes (Hospitalization, Other)
  Sender: FDA-Public Use
  Company Number: PHHY2011PE97026

PATIENT
  Age: 81 Year
  Sex: Female

DRUGS (1)
  1. WARFARIN SODIUM [Suspect]
     Dosage: 2.5 MG, UNK
     Route: 048

REACTIONS (10)
  - INTERNATIONAL NORMALISED RATIO INCREASED [None]
  - VOMITING [None]
  - NAUSEA [None]
  - ABDOMINAL DISTENSION [None]
  - LEUKOCYTOSIS [None]
  - HYPERGLYCAEMIA [None]
  - HAEMATOMA [None]
  - ABDOMINAL PAIN [None]
  - PAIN [None]
  - PYREXIA [None]
